FAERS Safety Report 9530825 (Version 1)
Quarter: 2013Q1

REPORT INFORMATION
  Report Type: Spontaneous
  Country: US (occurrence: None)
  Receive Date: 20130315
  Receipt Date: 20130315
  Transmission Date: 20140127
  Serious: Yes (Other)
  Sender: FDA-Public Use
  Company Number: US-JNJFOC-20121205366

PATIENT
  Age: 50 Year
  Sex: Female
  Weight: 47.6 kg

DRUGS (1)
  1. IBUPROFEN ( IBUPROFEN) [Suspect]
     Indication: DENTAL OPERATION
     Route: 048
     Dates: start: 201211, end: 201211

REACTIONS (1)
  - Angioedema [None]
